FAERS Safety Report 8003368-2 (Version None)
Quarter: 2011Q4

REPORT INFORMATION
  Report Type: 
  Country: None (occurrence: None)
  Receive Date: 20111222
  Receipt Date: 20111219
  Transmission Date: 20120403
  Serious: Yes (Hospitalization)
  Sender: FDA-Public Use
  Company Number: FR-ABBOTT-11P-056-0885195-00

PATIENT
  Age: 29 Year
  Sex: Male

DRUGS (1)
  1. HUMIRA [Suspect]
     Indication: CROHN'S DISEASE
     Route: 058
     Dates: start: 20110101, end: 20110628

REACTIONS (5)
  - HYPERTHERMIA [None]
  - CHILLS [None]
  - ABDOMINAL PAIN [None]
  - TACHYCARDIA [None]
  - C-REACTIVE PROTEIN INCREASED [None]
